FAERS Safety Report 5031062-9 (Version None)
Quarter: 2006Q2

REPORT INFORMATION
  Report Type: 
  Country: None (occurrence: None)
  Receive Date: 20060619
  Receipt Date: 20060619
  Transmission Date: 20061013
  Serious: Yes (Life-Threatening, Other)
  Sender: FDA-Public Use
  Company Number: None

PATIENT
  Sex: Male
  Weight: 79.3795 kg

DRUGS (2)
  1. LUNESTA [Suspect]
     Indication: AGITATION
     Dosage: 2X2MG=4MG ONCE PO
     Route: 048
     Dates: start: 20060611, end: 20060611
  2. LUNESTA [Suspect]
     Indication: RESTLESSNESS
     Dosage: 2X2MG=4MG ONCE PO
     Route: 048
     Dates: start: 20060611, end: 20060611

REACTIONS (13)
  - AMNESIA [None]
  - CONFUSIONAL STATE [None]
  - DIZZINESS [None]
  - DREAMY STATE [None]
  - DRUG INTERACTION [None]
  - FEELING ABNORMAL [None]
  - INCORRECT DOSE ADMINISTERED [None]
  - MEDICATION ERROR [None]
  - MUSCULAR WEAKNESS [None]
  - NAUSEA [None]
  - OVERDOSE [None]
  - SLEEP WALKING [None]
  - THERAPEUTIC AGENT TOXICITY [None]
